FAERS Safety Report 12259730 (Version 1)
Quarter: 2016Q2

REPORT INFORMATION
  Report Type: Spontaneous
  Country: US (occurrence: US)
  Receive Date: 20160412
  Receipt Date: 20160412
  Transmission Date: 20160815
  Serious: No
  Sender: FDA-Public Use
  Company Number: US-SA-2015SA127011

PATIENT
  Age: 79 Year
  Sex: Female

DRUGS (1)
  1. ALLEGRA [Suspect]
     Active Substance: FEXOFENADINE HYDROCHLORIDE
     Indication: PRURITUS
     Dosage: TOOK FROM A YEAR OR SO AGO, DOSE: HALF OF 180 MG.
     Route: 048

REACTIONS (2)
  - Wrong technique in product usage process [Unknown]
  - Therapeutic response decreased [Unknown]
